FAERS Safety Report 9782816 (Version 1)
Quarter: 2013Q4

REPORT INFORMATION
  Report Type: Spontaneous
  Country: US (occurrence: None)
  Receive Date: 20131220
  Receipt Date: 20131220
  Transmission Date: 20140711
  Serious: Yes (Hospitalization, Disabling)
  Sender: FDA-Public Use
  Company Number: AUR-APL-2013-10497

PATIENT
  Age: 83 Year
  Sex: Female
  Weight: 75 kg

DRUGS (8)
  1. ALENDRONIC ACID (ALENDRONIC ACID) [Suspect]
     Indication: OSTEOARTHRITIS
     Dosage: (70 MG, 1 IN 1 WK), ORAL
     Route: 048
     Dates: end: 20131031
  2. ASPIRIN (ACETYLSALICYLIC ACID) [Concomitant]
  3. CALCICHEW D3 (LEKOVIT CA) [Concomitant]
  4. CO-CODAMOL (PANADEINE CO) [Concomitant]
  5. IBUPROFEN (IBUPROFEN) [Concomitant]
  6. OMEPRAZOE (OMEPRAZOLE) [Concomitant]
  7. RAMIPRIL (RAMIPRIL) [Concomitant]
  8. SIMVASTATIN (SIMVASTATIN) [Concomitant]

REACTIONS (1)
  - Atypical fracture [None]
